FAERS Safety Report 17090883 (Version 6)
Quarter: 2020Q1

REPORT INFORMATION
  Report Type: Spontaneous
  Country: US (occurrence: US)
  Receive Date: 20191129
  Receipt Date: 20200203
  Transmission Date: 20200409
  Serious: No
  Sender: FDA-Public Use
  Company Number: US-BIOGEN-2019BI00812136

PATIENT
  Sex: Female

DRUGS (1)
  1. TYSABRI [Suspect]
     Active Substance: NATALIZUMAB
     Indication: MULTIPLE SCLEROSIS
     Dosage: INFUSED OVER 1 HOUR
     Route: 065

REACTIONS (5)
  - Malaise [Unknown]
  - Musculoskeletal disorder [Unknown]
  - Frustration tolerance decreased [Unknown]
  - Memory impairment [Unknown]
  - Fall [Recovered/Resolved]
